FAERS Safety Report 11548821 (Version 1)
Quarter: 2015Q3

REPORT INFORMATION
  Report Type: Spontaneous
  Country: US (occurrence: US)
  Receive Date: 20150924
  Receipt Date: 20150924
  Transmission Date: 20151125
  Serious: No
  Sender: FDA-Public Use
  Company Number: US-INCYTE CORPORATION-2015IN002233

PATIENT
  Sex: Male

DRUGS (4)
  1. JAKAFI [Suspect]
     Active Substance: RUXOLITINIB
     Dosage: 10 MG, QD
     Route: 048
     Dates: start: 201501
  2. TEMAZEPAM. [Concomitant]
     Active Substance: TEMAZEPAM
  3. OXYCODONE AND ACETAMINOPHEN [Concomitant]
     Active Substance: ACETAMINOPHEN\OXYCODONE\OXYCODONE HYDROCHLORIDE
  4. TRIAMTERENE. [Concomitant]
     Active Substance: TRIAMTERENE

REACTIONS (2)
  - Increased appetite [Unknown]
  - Hunger [Unknown]

NARRATIVE: CASE EVENT DATE: 2015
